FAERS Safety Report 13088573 (Version 1)
Quarter: 2017Q1

REPORT INFORMATION
  Report Type: Spontaneous
  Country: US (occurrence: US)
  Receive Date: 20170105
  Receipt Date: 20170105
  Transmission Date: 20170428
  Serious: Yes (Hospitalization)
  Sender: FDA-Public Use
  Company Number: None

PATIENT
  Age: 56 Year
  Sex: Male

DRUGS (4)
  1. SYMBICORT [Concomitant]
     Active Substance: BUDESONIDE\FORMOTEROL FUMARATE DIHYDRATE
  2. TASIGNA [Suspect]
     Active Substance: NILOTINIB
     Indication: CHRONIC MYELOID LEUKAEMIA
     Dosage: 2 CAPSULES BID PO
     Route: 048
     Dates: start: 20141030
  3. SPIRIVA [Concomitant]
     Active Substance: TIOTROPIUM BROMIDE MONOHYDRATE
  4. METHOTREXATE. [Concomitant]
     Active Substance: METHOTREXATE

REACTIONS (2)
  - Intestinal obstruction [None]
  - Drug dose omission [None]
